FAERS Safety Report 4961037-7 (Version None)
Quarter: 2006Q1

REPORT INFORMATION
  Report Type: 
  Country: None (occurrence: None)
  Receive Date: 20060328
  Receipt Date: 20060313
  Transmission Date: 20060701
  Serious: Yes (Hospitalization)
  Sender: FDA-Public Use
  Company Number: VNL_0117_2006

PATIENT
  Age: 68 Year
  Sex: Female
  Weight: 64.9 kg

DRUGS (6)
  1. APO-GO SOLUTION FOR INJECTION [Suspect]
     Indication: PARKINSON'S DISEASE
     Dosage: 5 MG Q1HR SC
     Route: 058
     Dates: start: 20050201, end: 20060308
  2. AMANTADINE HCL [Concomitant]
  3. SIFROL [Concomitant]
  4. ISICOM [Concomitant]
  5. ELCRIT [Concomitant]
  6. PARKINSAN [Concomitant]

REACTIONS (1)
  - IRON DEFICIENCY ANAEMIA [None]
